FAERS Safety Report 12615417 (Version 1)
Quarter: 2016Q3

REPORT INFORMATION
  Report Type: Spontaneous
  Country: FR (occurrence: FR)
  Receive Date: 20160802
  Receipt Date: 20160802
  Transmission Date: 20161109
  Serious: Yes (Hospitalization, Other)
  Sender: FDA-Public Use
  Company Number: FR-ELI_LILLY_AND_COMPANY-FR201607011111

PATIENT
  Age: 68 Year
  Sex: Male

DRUGS (5)
  1. ALIMTA [Suspect]
     Active Substance: PEMETREXED DISODIUM
     Indication: PLEURAL MESOTHELIOMA
     Dosage: UNK, UNKNOWN
     Route: 042
     Dates: start: 201511
  2. ALIMTA [Suspect]
     Active Substance: PEMETREXED DISODIUM
     Indication: MALIGNANT NEOPLASM PROGRESSION
     Dosage: 825 MG, UNKNOWN
     Route: 042
     Dates: start: 20160629
  3. AVASTIN [Suspect]
     Active Substance: BEVACIZUMAB
     Indication: PLEURAL MESOTHELIOMA
  4. FLAGYL [Suspect]
     Active Substance: METRONIDAZOLE\METRONIDAZOLE HYDROCHLORIDE
     Indication: ANAL FISSURE
     Dosage: 500 MG, BID
     Route: 065
     Dates: start: 20160702, end: 20160706
  5. CISPLATINE [Suspect]
     Active Substance: CISPLATIN
     Indication: PLEURAL MESOTHELIOMA

REACTIONS (7)
  - Dermatitis exfoliative [Not Recovered/Not Resolved]
  - Hepatocellular injury [Not Recovered/Not Resolved]
  - Rash maculo-papular [Unknown]
  - Anal fissure [Unknown]
  - Off label use [Unknown]
  - Pyrexia [Not Recovered/Not Resolved]
  - Malignant neoplasm progression [Unknown]

NARRATIVE: CASE EVENT DATE: 201511
